FAERS Safety Report 19075620 (Version 1)
Quarter: 2021Q1

REPORT INFORMATION
  Report Type: Spontaneous
  Country: TW (occurrence: TW)
  Receive Date: 20210331
  Receipt Date: 20210331
  Transmission Date: 20210420
  Serious: Yes (Hospitalization, Other)
  Sender: FDA-Public Use
  Company Number: TW-LUPIN PHARMACEUTICALS INC.-2021-03805

PATIENT
  Age: 69 Year
  Sex: Male

DRUGS (3)
  1. LEVOFLOXACIN. [Suspect]
     Active Substance: LEVOFLOXACIN
     Indication: PERITONITIS BACTERIAL
     Dosage: 750 MILLIGRAM, QD
     Route: 065
  2. SULFAMETHOXAZOLE AND TRIMETHOPRIM [Suspect]
     Active Substance: SULFAMETHOXAZOLE\TRIMETHOPRIM
     Indication: PERITONITIS BACTERIAL
     Dosage: UNK
     Route: 065
  3. PIPERACILLIN/TAZOBACTAM [Suspect]
     Active Substance: PIPERACILLIN SODIUM\TAZOBACTAM SODIUM
     Indication: PERITONITIS BACTERIAL
     Dosage: UNK
     Route: 065

REACTIONS (2)
  - Pathogen resistance [Unknown]
  - Drug ineffective [Unknown]
